FAERS Safety Report 12692174 (Version 3)
Quarter: 2016Q3

REPORT INFORMATION
  Report Type: Other
  Country: MY (occurrence: MY)
  Receive Date: 20160827
  Receipt Date: 20160914
  Transmission Date: 20161109
  Serious: Yes (Other)
  Sender: FDA-Public Use
  Company Number: MY-LUPIN PHARMACEUTICALS INC.-2016-03811

PATIENT
  Age: 54 Year
  Sex: Female

DRUGS (2)
  1. DICLOFENAC INJECTION 75 MG/3ML [Suspect]
     Active Substance: DICLOFENAC
     Indication: PAIN
     Dosage: 50 MG
     Route: 030
  2. DICLOFENAC INJECTION 75 MG/3ML [Suspect]
     Active Substance: DICLOFENAC
     Indication: PAIN
     Dosage: 50 MG
     Route: 030

REACTIONS (4)
  - Injection site pain [Recovered/Resolved]
  - Oedema [Recovered/Resolved]
  - Pruritus [Recovered/Resolved]
  - Injection site swelling [Recovered/Resolved]

NARRATIVE: CASE EVENT DATE: 20150309
